FAERS Safety Report 14949221 (Version 2)
Quarter: 2024Q2

REPORT INFORMATION
  Report Type: Report from Study
  Country: FR (occurrence: FR)
  Receive Date: 20180529
  Receipt Date: 20240531
  Transmission Date: 20240716
  Serious: Yes (Death, Hospitalization)
  Sender: FDA-Public Use
  Company Number: FR-MYLANLABS-2018M1035098

PATIENT
  Age: 54 Year
  Sex: Female

DRUGS (3)
  1. MYCOPHENOLATE MOFETIL [Suspect]
     Active Substance: MYCOPHENOLATE MOFETIL
     Indication: Cryoglobulinaemia
     Dosage: UNK
     Route: 065
  2. TACROLIMUS [Suspect]
     Active Substance: TACROLIMUS
     Indication: Cryoglobulinaemia
     Dosage: UNK
     Route: 065
  3. RITUXIMAB [Suspect]
     Active Substance: RITUXIMAB
     Indication: Cryoglobulinaemia
     Dosage: UNK, INFUSION, CUMULATIVE DOSAGE TO FIRST REACTION: 9000MG BEFORE THE ONSET
     Route: 065

REACTIONS (6)
  - Staphylococcal infection [Fatal]
  - Systemic candida [Fatal]
  - Cerebral haemorrhage [Fatal]
  - Pneumonia pseudomonal [Unknown]
  - Pneumonia klebsiella [Unknown]
  - Off label use [Unknown]
